FAERS Safety Report 6113935-9 (Version None)
Quarter: 2009Q1

REPORT INFORMATION
  Report Type: 
  Country: None (occurrence: None)
  Receive Date: 20090312
  Receipt Date: 20090225
  Transmission Date: 20090719
  Serious: Yes (Hospitalization, Other)
  Sender: FDA-Public Use
  Company Number: DE-GENENTECH-278016

PATIENT
  Sex: Female

DRUGS (5)
  1. BEVACIZUMAB [Suspect]
     Indication: BREAST CANCER
     Dosage: 1134 MG, Q21D
     Route: 042
     Dates: start: 20081104
  2. DOCETAXEL [Suspect]
     Indication: BREAST CANCER
     Dosage: 187 MG, Q21D
     Route: 042
     Dates: start: 20090127
  3. CYCLOPHOSPHAMIDE [Suspect]
     Indication: BREAST CANCER
     Dosage: 1044 MG, Q21D
     Route: 042
     Dates: start: 20081104
  4. EPIRUBICIN [Suspect]
     Indication: BREAST CANCER
     Dosage: 157 MG, Q21D
     Route: 042
     Dates: start: 20081104
  5. FERRO SANOL [Concomitant]
     Indication: DRUG USE FOR UNKNOWN INDICATION
     Dosage: UNK
     Dates: start: 20090116, end: 20090202

REACTIONS (2)
  - HYPERTENSIVE CRISIS [None]
  - PYREXIA [None]
